FAERS Safety Report 5251468-2 (Version None)
Quarter: 2007Q1

REPORT INFORMATION
  Report Type: 
  Country: None (occurrence: None)
  Receive Date: 20070228
  Receipt Date: 20060511
  Transmission Date: 20070707
  Serious: No
  Sender: FDA-Public Use
  Company Number: 8011377

PATIENT
  Age: 58 Year
  Sex: Female

DRUGS (7)
  1. LAMICTAL [Suspect]
     Dosage: 100MG TWICE PER DAY
     Route: 048
     Dates: start: 20050822
  2. KEPPRA [Suspect]
     Dosage: 250MG TWICE PER DAY
     Route: 048
     Dates: start: 20040101
  3. ZOMETA [Suspect]
     Route: 042
     Dates: start: 20050201
  4. TEGRETOL [Concomitant]
     Dosage: 1100MG UNKNOWN
     Route: 048
     Dates: start: 20040101
  5. HERCEPTIN [Concomitant]
     Dates: start: 20000101
  6. METOPROLOL SUCCINATE [Concomitant]
  7. TYLENOL [Concomitant]
     Indication: PROPHYLAXIS
     Dates: start: 20050101

REACTIONS (6)
  - DIZZINESS [None]
  - DRUG EFFECT DECREASED [None]
  - MUSCLE TWITCHING [None]
  - NAUSEA [None]
  - PRURITUS GENERALISED [None]
  - VERTIGO [None]
